FAERS Safety Report 17484831 (Version 1)
Quarter: 2020Q1

REPORT INFORMATION
  Report Type: Spontaneous
  Country: ES (occurrence: ES)
  Receive Date: 20200302
  Receipt Date: 20200302
  Transmission Date: 20200409
  Serious: Yes (Other)
  Sender: FDA-Public Use
  Company Number: ES-MYLANLABS-2020M1022374

PATIENT
  Age: 78 Year
  Sex: Male

DRUGS (7)
  1. IRBESARTAN AND HYDROCHLOROTHIAZIDE [Concomitant]
     Active Substance: HYDROCHLOROTHIAZIDE\IRBESARTAN
     Dosage: UNK
  2. SIMVASTATIN. [Concomitant]
     Active Substance: SIMVASTATIN
  3. TOCOPHEROL [Concomitant]
     Active Substance: TOCOPHEROL
  4. SINTROM [Concomitant]
     Active Substance: ACENOCOUMAROL
  5. BISOPROLOL [Concomitant]
     Active Substance: BISOPROLOL
  6. DIAZEPAM. [Concomitant]
     Active Substance: DIAZEPAM
  7. OMEPRAZOLE. [Suspect]
     Active Substance: OMEPRAZOLE
     Indication: PRODUCT USED FOR UNKNOWN INDICATION
     Dosage: UNKNOWN

REACTIONS (1)
  - Traumatic ulcer [Recovering/Resolving]

NARRATIVE: CASE EVENT DATE: 2011
